FAERS Safety Report 5743630-7 (Version None)
Quarter: 2008Q2

REPORT INFORMATION
  Report Type: 
  Country: None (occurrence: None)
  Receive Date: 20080519
  Receipt Date: 20080519
  Transmission Date: 20081010
  Serious: No
  Sender: FDA-Public Use
  Company Number: None

PATIENT
  Sex: Male
  Weight: 79 kg

DRUGS (3)
  1. FLUOROURACIL [Suspect]
     Dosage: 4000 MG
     Dates: end: 20041123
  2. LEUCOVORIN CALCIUM [Suspect]
     Dosage: 4000 MG
     Dates: end: 20041123
  3. CRESTOR [Concomitant]

REACTIONS (9)
  - ACTIVITIES OF DAILY LIVING IMPAIRED [None]
  - CARDIAC DISORDER [None]
  - DIARRHOEA [None]
  - DYSPEPSIA [None]
  - ISCHAEMIC CARDIOMYOPATHY [None]
  - MYOCARDIAL INFARCTION [None]
  - NAUSEA [None]
  - PERFORMANCE STATUS DECREASED [None]
  - THERAPEUTIC AGENT TOXICITY [None]
